FAERS Safety Report 13534531 (Version 2)
Quarter: 2022Q2

REPORT INFORMATION
  Report Type: Spontaneous
  Country: SE (occurrence: SE)
  Receive Date: 20170511
  Receipt Date: 20220405
  Transmission Date: 20220721
  Serious: Yes (Hospitalization, Other)
  Sender: FDA-Public Use
  Company Number: SE-PERRIGO-17SE023482

PATIENT
  Age: 21 Year
  Sex: Male

DRUGS (1)
  1. ACETAMINOPHEN [Suspect]
     Active Substance: ACETAMINOPHEN
     Indication: Product used for unknown indication
     Dosage: 100 G, UNK
     Route: 048

REACTIONS (3)
  - Overdose [Recovered/Resolved]
  - Lactic acidosis [Recovered/Resolved]
  - Mental status changes [Recovered/Resolved]
